FAERS Safety Report 9372298 (Version 1)
Quarter: 2013Q2

REPORT INFORMATION
  Report Type: Report from Study
  Country: US (occurrence: US)
  Receive Date: 20130627
  Receipt Date: 20130627
  Transmission Date: 20140414
  Serious: Yes (Other)
  Sender: FDA-Public Use
  Company Number: PHEH2013US013671

PATIENT
  Age: 23 Year
  Sex: Female
  Weight: 47.62 kg

DRUGS (10)
  1. TOBI [Suspect]
     Indication: PSEUDOMONAS INFECTION
     Dosage: 1 DF, BID (1 AMPULE, BID)
     Dates: start: 20130621
  2. DEPO PROVERA [Concomitant]
     Dosage: UNK UKN, UNK
  3. FELBATOL [Concomitant]
     Dosage: UNK UKN, UNK
  4. LASIX [Concomitant]
     Dosage: 20 MG, PRN
  5. NORTRIPTYLINE HCL [Concomitant]
     Dosage: UNK UKN, UNK
  6. VALPROIC ACID [Concomitant]
     Dosage: UNK UKN, UNK
  7. HYDROCHLOROTHIAZIDE [Concomitant]
     Dosage: UNK UKN, UNK
  8. ONFI [Concomitant]
     Dosage: UNK UKN, UNK
  9. ADVAIR [Concomitant]
     Dosage: UNK UKN, UNK
  10. LOMOTIL [Concomitant]
     Dosage: UNK UKN, UNK

REACTIONS (2)
  - Convulsion [Not Recovered/Not Resolved]
  - Diarrhoea [Not Recovered/Not Resolved]
